FAERS Safety Report 22181501 (Version 1)
Quarter: 2023Q2

REPORT INFORMATION
  Report Type: Spontaneous
  Country: DE (occurrence: DE)
  Receive Date: 20230406
  Receipt Date: 20230406
  Transmission Date: 20230722
  Serious: Yes (Life-Threatening, Hospitalization)
  Sender: FDA-Public Use
  Company Number: DE-AMK-264460

PATIENT
  Age: 61 Year
  Sex: Male
  Weight: 93 kg

DRUGS (6)
  1. ERBITUX [Suspect]
     Active Substance: CETUXIMAB
     Indication: Colorectal cancer metastatic
     Dosage: UNK UNK, UNKNOWN
     Route: 065
     Dates: start: 20230227
  2. PANTOPRAZOLE [Concomitant]
     Active Substance: PANTOPRAZOLE
     Indication: Product used for unknown indication
     Dosage: UNK
  3. DEXA [DEXAMETHASONE SODIUM SUCCINATE] [Concomitant]
     Indication: Product used for unknown indication
     Dosage: UNK
  4. LISINOPRIL [Concomitant]
     Active Substance: LISINOPRIL
     Indication: Product used for unknown indication
     Dosage: UNK
  5. DIMETHINDENE MALEATE [Concomitant]
     Active Substance: DIMETHINDENE MALEATE
     Indication: Product used for unknown indication
     Dosage: UNK
  6. GRANISETRON [Concomitant]
     Active Substance: GRANISETRON
     Indication: Product used for unknown indication
     Dosage: UNK

REACTIONS (6)
  - Resuscitation [Recovering/Resolving]
  - Seizure [Unknown]
  - Dyspnoea [Unknown]
  - Anaphylactic shock [Recovering/Resolving]
  - Rash [Unknown]
  - Erythema [Unknown]

NARRATIVE: CASE EVENT DATE: 20230227
